FAERS Safety Report 8160582-3 (Version None)
Quarter: 2012Q1

REPORT INFORMATION
  Report Type: 
  Country: None (occurrence: None)
  Receive Date: 20120223
  Receipt Date: 20120215
  Transmission Date: 20120608
  Serious: Yes (Death)
  Sender: FDA-Public Use
  Company Number: JP-AMGEN-JPNCT2012011816

PATIENT
  Age: 76 Year
  Sex: Male
  Weight: 166 kg

DRUGS (2)
  1. IRINOTECAN HCL [Concomitant]
     Indication: COLORECTAL CANCER
     Route: 041
     Dates: start: 20101116, end: 20101208
  2. VECTIBIX [Suspect]
     Indication: COLORECTAL CANCER
     Dosage: 6 MG/KG, Q2WK
     Route: 041
     Dates: start: 20101116, end: 20101208

REACTIONS (1)
  - DEATH [None]
